FAERS Safety Report 5528425-1 (Version None)
Quarter: 2007Q4

REPORT INFORMATION
  Report Type: 
  Country: None (occurrence: None)
  Receive Date: 20071128
  Receipt Date: 20071120
  Transmission Date: 20080405
  Serious: Yes (Other)
  Sender: FDA-Public Use
  Company Number: GB-ABBOTT-07P-167-0425527-00

PATIENT
  Age: 66 Year
  Sex: Female
  Weight: 60 kg

DRUGS (4)
  1. CLARITHROMYCIN [Suspect]
     Indication: SINUSITIS
     Dates: start: 20070510, end: 20070512
  2. AMOXICILLIN [Suspect]
     Indication: SINUSITIS
  3. TRIMETHOPRIM [Suspect]
     Indication: DRUG USE FOR UNKNOWN INDICATION
  4. OFLOXACIN [Concomitant]
     Indication: DRUG USE FOR UNKNOWN INDICATION
     Dates: start: 20070607

REACTIONS (4)
  - AGEUSIA [None]
  - ANOSMIA [None]
  - EMOTIONAL DISTRESS [None]
  - PAROSMIA [None]
